FAERS Safety Report 5271193-1 (Version None)
Quarter: 2007Q1

REPORT INFORMATION
  Report Type: 
  Country: None (occurrence: None)
  Receive Date: 20070321
  Receipt Date: 20070306
  Transmission Date: 20070707
  Serious: Yes (Death, Other)
  Sender: FDA-Public Use
  Company Number: 2007PK00523

PATIENT
  Age: 82 Year
  Sex: Male
  Weight: 46 kg

DRUGS (4)
  1. ATACAND [Suspect]
     Indication: CARDIAC FAILURE
     Route: 048
     Dates: start: 20060413
  2. TORSEMIDE [Concomitant]
  3. NEBILET [Concomitant]
  4. AQUAPHOR [Concomitant]

REACTIONS (2)
  - DEATH [None]
  - RENAL FAILURE [None]
